FAERS Safety Report 5240301-0 (Version None)
Quarter: 2007Q1

REPORT INFORMATION
  Report Type: 
  Country: None (occurrence: None)
  Receive Date: 20061208
  Receipt Date: 20050127
  Transmission Date: 20070707
  Serious: Yes (Other)
  Sender: FDA-Public Use
  Company Number: 2005UW01473

PATIENT
  Age: 80 Year
  Sex: Female
  Weight: 53.977 kg

DRUGS (3)
  1. CRESTOR [Suspect]
     Indication: BLOOD CHOLESTEROL INCREASED
     Dosage: 5 MG BID PO
     Route: 048
     Dates: start: 20041201, end: 20050101
  2. VITAMINS [Concomitant]
  3. GLYBURIDE [Concomitant]

REACTIONS (2)
  - ABDOMINAL PAIN [None]
  - BREAST ENLARGEMENT [None]
